FAERS Safety Report 5319358-4 (Version None)
Quarter: 2007Q2

REPORT INFORMATION
  Report Type: 
  Country: None (occurrence: None)
  Receive Date: 20070508
  Receipt Date: 20070501
  Transmission Date: 20071010
  Serious: Yes (Other)
  Sender: FDA-Public Use
  Company Number: US-ELI_LILLY_AND_COMPANY-US200705000443

PATIENT
  Age: 62 Year
  Sex: Male
  Weight: 82.993 kg

DRUGS (7)
  1. BYETTA [Suspect]
     Dosage: 5 UG, 2/D
     Route: 058
     Dates: start: 20060901, end: 20061001
  2. BYETTA [Suspect]
     Dosage: 10 UG, 2/D
     Route: 058
     Dates: start: 20061001, end: 20060101
  3. BYETTA [Suspect]
     Dosage: 5 UG, 2/D
     Route: 058
     Dates: start: 20070301
  4. AVANDIA [Concomitant]
  5. METFORMIN HCL [Concomitant]
  6. ATENOLOL [Concomitant]
  7. ISOSORBIDE [Concomitant]

REACTIONS (7)
  - DECREASED APPETITE [None]
  - LOSS OF CONSCIOUSNESS [None]
  - NAUSEA [None]
  - PERIPHERAL VASCULAR DISORDER [None]
  - STOMACH DISCOMFORT [None]
  - WEIGHT DECREASED [None]
  - WEIGHT INCREASED [None]
